FAERS Safety Report 20139893 (Version 2)
Quarter: 2022Q1

REPORT INFORMATION
  Report Type: Spontaneous
  Country: US (occurrence: US)
  Receive Date: 20211202
  Receipt Date: 20220125
  Transmission Date: 20220424
  Serious: Yes (Other)
  Sender: FDA-Public Use
  Company Number: US-PFIZER INC-202101647345

PATIENT
  Sex: Male

DRUGS (1)
  1. NICOTROL [Suspect]
     Active Substance: NICOTINE
     Indication: Smoking cessation therapy
     Dosage: UNK
     Dates: start: 2013

REACTIONS (3)
  - Drug dependence [Unknown]
  - Drug ineffective [Unknown]
  - Product label confusion [Unknown]

NARRATIVE: CASE EVENT DATE: 20130101
